FAERS Safety Report 9343738 (Version 1)
Quarter: 2013Q2

REPORT INFORMATION
  Report Type: Spontaneous
  Country: DE (occurrence: None)
  Receive Date: 20130610
  Receipt Date: 20130610
  Transmission Date: 20140414
  Serious: Yes (Hospitalization)
  Sender: FDA-Public Use
  Company Number: AUR-APL-2013-04517

PATIENT
  Age: 76 Year
  Sex: 0

DRUGS (4)
  1. SIMVASTATIN (SIMVASTATIN) [Suspect]
     Indication: CORONARY ARTERY DISEASE
     Route: 048
     Dates: end: 20130313
  2. BRILIQUE [Suspect]
     Indication: CORONARY ARTERY DISEASE
     Route: 048
     Dates: start: 201303, end: 20130313
  3. BISPROLOL (BISOPROLOL) [Concomitant]
  4. ASS (ACETYLASLICYLIC ACID) [Concomitant]

REACTIONS (2)
  - Rhabdomyolysis [None]
  - Drug interaction [None]
